FAERS Safety Report 8788861 (Version 2)
Quarter: 2012Q4

REPORT INFORMATION
  Report Type: Report from Study
  Country: US (occurrence: US)
  Receive Date: 20120915
  Receipt Date: 20121029
  Transmission Date: 20130627
  Serious: Yes (Hospitalization)
  Sender: FDA-Public Use
  Company Number: US-ABBOTT-12P-163-0979230-00

PATIENT
  Sex: Female

DRUGS (2)
  1. HUMIRA [Suspect]
     Indication: COLITIS ULCERATIVE
     Dosage: ONLY RECEIVED ONE INJECTION
     Dates: start: 201108, end: 201108
  2. HUMIRA [Suspect]
     Dates: start: 20120913

REACTIONS (4)
  - Colitis ulcerative [Unknown]
  - Ileal stenosis [Recovered/Resolved]
  - Off label use [Unknown]
  - Crohn^s disease [Unknown]
